FAERS Safety Report 5863457-5 (Version None)
Quarter: 2008Q3

REPORT INFORMATION
  Report Type: 
  Country: None (occurrence: None)
  Receive Date: 20080828
  Receipt Date: 20080815
  Transmission Date: 20090109
  Serious: Yes (Hospitalization)
  Sender: FDA-Public Use
  Company Number: US-SANOFI-SYNTHELABO-A03200803266

PATIENT
  Sex: Female

DRUGS (1)
  1. AMBIEN [Suspect]
     Indication: INSOMNIA
     Dosage: OCCASIONALLY, AROUND TWICE PER WEEK
     Route: 048
     Dates: start: 20060901

REACTIONS (3)
  - EYEBALL RUPTURE [None]
  - FALL [None]
  - SOMNAMBULISM [None]
